FAERS Safety Report 9783801 (Version 1)
Quarter: 2013Q4

REPORT INFORMATION
  Report Type: Spontaneous
  Country: US (occurrence: US)
  Receive Date: 20131226
  Receipt Date: 20131226
  Transmission Date: 20140711
  Serious: No
  Sender: FDA-Public Use
  Company Number: US-PFIZER INC-2013366177

PATIENT
  Sex: Female

DRUGS (4)
  1. LYRICA [Suspect]
     Indication: MIGRAINE
     Dosage: 150 MG, 2X/DAY (ONE 150 MG CAPSULE IN THE MORNING AND ONE 150 MG CAPSULE AT NIGHT)
  2. LYRICA [Suspect]
     Dosage: 450 MG, 2X/DAY (THREE 150 MG CAPSULES IN THE MORNING AND THREE 150 MG CAPSULES AT NIGHT)
  3. LYRICA [Suspect]
     Dosage: 900 MG, (OVER A TWO HOUR PERIOD)
     Dates: start: 201311
  4. LYRICA [Suspect]
     Dosage: 450 MG IN THE MORNING
     Dates: start: 20131219

REACTIONS (4)
  - Off label use [Unknown]
  - Intentional overdose [Unknown]
  - Fatigue [Unknown]
  - Pallor [Unknown]
